FAERS Safety Report 12124264 (Version 1)
Quarter: 2016Q1

REPORT INFORMATION
  Report Type: Spontaneous
  Country: US (occurrence: US)
  Receive Date: 20160229
  Receipt Date: 20160229
  Transmission Date: 20160526
  Serious: Yes (Hospitalization)
  Sender: FDA-Public Use
  Company Number: US-SA-2016SA039917

PATIENT
  Age: 77 Year
  Sex: Female
  Weight: 60.78 kg

DRUGS (22)
  1. NORMAL SALINE [Concomitant]
     Active Substance: SODIUM CHLORIDE
     Indication: FLUSHING
     Route: 042
     Dates: start: 20151029
  2. LASIX [Concomitant]
     Active Substance: FUROSEMIDE
     Dosage: DOSE: 1 TAB
     Route: 048
     Dates: start: 20150924
  3. PRILOSEC [Concomitant]
     Active Substance: OMEPRAZOLE MAGNESIUM
     Dosage: DOSE: 1 CAPSULE
     Route: 048
     Dates: start: 20150924
  4. LEVEMIR [Concomitant]
     Active Substance: INSULIN DETEMIR
     Dosage: 8 UN SUBCUT
     Dates: start: 20150924
  5. SENNA [Concomitant]
     Active Substance: SENNA LEAF\SENNOSIDES\SENNOSIDES A AND B
     Dosage: DOSE: 1 TAB
     Route: 048
     Dates: start: 20150924
  6. HUMALOG [Concomitant]
     Active Substance: INSULIN LISPRO
     Dosage: 3 UNITS SUBCUT
     Dates: start: 20160113
  7. PANTOPRAZOLE [Concomitant]
     Active Substance: PANTOPRAZOLE SODIUM
     Dosage: 1 TAB
     Route: 048
     Dates: start: 20160113
  8. FABRAZYME [Suspect]
     Active Substance: AGALSIDASE BETA
     Indication: LIPIDOSIS
     Route: 042
  9. HEPARIN [Concomitant]
     Active Substance: HEPARIN SODIUM
     Indication: FLUSHING
     Dosage: DOSE: 100 UN/ML
     Route: 042
     Dates: start: 20151029
  10. WARFARIN [Concomitant]
     Active Substance: WARFARIN
     Dosage: DOSE: 1 TAB
     Route: 048
     Dates: start: 20150924
  11. TIKOSYN [Concomitant]
     Active Substance: DOFETILIDE
     Dosage: DOSE: 1 TAB
     Route: 048
     Dates: start: 20141105
  12. LIPITOR [Concomitant]
     Active Substance: ATORVASTATIN CALCIUM
     Dosage: 1 TAB
     Route: 048
     Dates: start: 20140703
  13. EPIPEN [Concomitant]
     Active Substance: EPINEPHRINE
     Indication: ANAPHYLACTIC REACTION
     Dates: start: 20151029
  14. LIDOCAINE. [Concomitant]
     Active Substance: LIDOCAINE
     Dosage: DOSE: 1 PATCH
     Route: 061
     Dates: start: 20150924
  15. METOPROLOL SUCCINATE. [Concomitant]
     Active Substance: METOPROLOL SUCCINATE
     Dosage: DOSE: 1 TAB
     Route: 048
     Dates: start: 20160113
  16. WATER FOR INJECTION [Concomitant]
     Active Substance: WATER
     Dosage: DOSE: 1 DOSE
     Route: 042
     Dates: start: 20151029
  17. MECLIZINE [Concomitant]
     Active Substance: MECLIZINE HYDROCHLORIDE
     Dosage: DOSE: 1 TAB
     Route: 048
     Dates: start: 20150924
  18. CALCIUM [Concomitant]
     Active Substance: CALCIUM
     Dosage: DOSE: 1 TAB
     Route: 048
     Dates: start: 20150924
  19. LEVOTHYROXINE. [Concomitant]
     Active Substance: LEVOTHYROXINE
     Dosage: DOSE: 1 TAB
     Route: 048
     Dates: start: 20160113
  20. VITAMIN D3 [Concomitant]
     Active Substance: CHOLECALCIFEROL
     Dosage: 1 CAPSULE
     Route: 048
     Dates: start: 20160113
  21. ASPIRIN. [Concomitant]
     Active Substance: ASPIRIN
     Dosage: 1 TAB
     Route: 048
     Dates: start: 20150924
  22. ATORVASTATIN [Concomitant]
     Active Substance: ATORVASTATIN
     Dosage: DOSE: 1 TAB
     Route: 048
     Dates: start: 20160113

REACTIONS (1)
  - Hospitalisation [Unknown]
